FAERS Safety Report 12958013 (Version 4)
Quarter: 2017Q1

REPORT INFORMATION
  Report Type: Spontaneous
  Country: JP (occurrence: JP)
  Receive Date: 20161120
  Receipt Date: 20170301
  Transmission Date: 20170428
  Serious: Yes (Hospitalization)
  Sender: FDA-Public Use
  Company Number: JP-AMGEN-JPNSP2016164157

PATIENT
  Age: 80 Year
  Sex: Male
  Weight: 58 kg

DRUGS (5)
  1. GONAX [Concomitant]
     Active Substance: DEGARELIX
     Dosage: 80 MG, QD
     Route: 058
     Dates: start: 20150912
  2. BETANIS [Concomitant]
     Active Substance: MIRABEGRON
     Dosage: 50 MG, QD
     Route: 048
     Dates: start: 20160319
  3. FLIVAS [Concomitant]
     Active Substance: NAFTOPIDIL
     Dosage: 50 MG, QD
     Route: 048
     Dates: start: 20150813
  4. RANMARK [Suspect]
     Active Substance: DENOSUMAB
     Indication: METASTASES TO BONE
     Dosage: 120 MG, UNK
     Route: 058
     Dates: start: 20151010, end: 20160713
  5. PREDONINE [Concomitant]
     Active Substance: PREDNISOLONE
     Dosage: 5 MG, BID
     Route: 048
     Dates: start: 20161005

REACTIONS (1)
  - Osteonecrosis of jaw [Recovering/Resolving]

NARRATIVE: CASE EVENT DATE: 20160907
